FAERS Safety Report 17951570 (Version 6)
Quarter: 2020Q3

REPORT INFORMATION
  Report Type: Spontaneous
  Country: PR (occurrence: PR)
  Receive Date: 20200626
  Receipt Date: 20200928
  Transmission Date: 20201103
  Serious: No
  Sender: FDA-Public Use
  Company Number: PR-PFIZER INC-2020246810

PATIENT
  Age: 68 Year
  Sex: Male

DRUGS (2)
  1. XELJANZ XR [Suspect]
     Active Substance: TOFACITINIB CITRATE
     Indication: RHEUMATOID ARTHRITIS
     Dosage: 11 MG, 1X/DAY
     Route: 048
     Dates: start: 202005
  2. XELJANZ XR [Suspect]
     Active Substance: TOFACITINIB CITRATE
     Dosage: 11 MG, DAILY
     Dates: start: 20200626

REACTIONS (11)
  - Drug ineffective [Unknown]
  - Expired product administered [Unknown]
  - Pruritus [Unknown]
  - Ocular hyperaemia [Unknown]
  - Chromaturia [Unknown]
  - Arthralgia [Unknown]
  - Onychomycosis [Unknown]
  - Psoriasis [Unknown]
  - Alopecia [Unknown]
  - Rash [Unknown]
  - Fungal skin infection [Unknown]
